FAERS Safety Report 12907619 (Version 1)
Quarter: 2016Q4

REPORT INFORMATION
  Report Type: Spontaneous
  Country: JP (occurrence: JP)
  Receive Date: 20161103
  Receipt Date: 20161103
  Transmission Date: 20170207
  Serious: Yes (Hospitalization, Other)
  Sender: FDA-Public Use
  Company Number: US-ASTRAZENECA-2016SF12606

PATIENT
  Age: 85 Year
  Weight: 85 kg

DRUGS (7)
  1. DIART [Suspect]
     Active Substance: AZOSEMIDE
     Indication: CARDIAC FAILURE
     Dosage: 30
     Route: 048
  2. BAYASPIRIN [Suspect]
     Active Substance: ASPIRIN
     Route: 048
  3. ADALAT CC [Suspect]
     Active Substance: NIFEDIPINE
     Indication: HYPERTENSION
     Dosage: 60
     Route: 048
  4. MIGSIS [Suspect]
     Active Substance: LOMERIZINE HYDROCHLORIDE
     Indication: MIGRAINE
     Route: 048
  5. AZILVA [Suspect]
     Active Substance: AZILSARTAN KAMEDOXOMIL
     Indication: HYPERTENSION
     Route: 048
  6. NEXIUM [Suspect]
     Active Substance: ESOMEPRAZOLE MAGNESIUM
     Route: 048
  7. QUINIDINE SULFATE. [Suspect]
     Active Substance: QUINIDINE SULFATE
     Indication: ARRHYTHMIA
     Route: 048

REACTIONS (2)
  - Cellulitis [Unknown]
  - Deep vein thrombosis [Unknown]

NARRATIVE: CASE EVENT DATE: 20161019
